FAERS Safety Report 5792731-6 (Version None)
Quarter: 2008Q2

REPORT INFORMATION
  Report Type: 
  Country: None (occurrence: None)
  Receive Date: 20080624
  Receipt Date: 20080606
  Transmission Date: 20081010
  Serious: Yes (Hospitalization, Disabling)
  Sender: FDA-Public Use
  Company Number: SPV1-2008-01147

PATIENT
  Age: 61 Year
  Sex: Male
  Weight: 86.2 kg

DRUGS (6)
  1. LIALDA [Suspect]
     Indication: COLITIS COLLAGENOUS
     Dosage: 1.2 G, 2X/DAY: BID, ORAL
     Route: 048
     Dates: start: 20080514, end: 20080501
  2. CLARITIN [Concomitant]
  3. ATENOLOL [Concomitant]
  4. TRIAMTERENE (TRIAMTERNE) [Concomitant]
  5. FLOMAX [Concomitant]
  6. VICODIN [Concomitant]

REACTIONS (2)
  - COLITIS COLLAGENOUS [None]
  - CONDITION AGGRAVATED [None]
